FAERS Safety Report 9005523 (Version 3)
Quarter: 2013Q2

REPORT INFORMATION
  Report Type: Spontaneous
  Country: US (occurrence: US)
  Receive Date: 20130109
  Receipt Date: 20130416
  Transmission Date: 20140414
  Serious: Yes (Death, Other)
  Sender: FDA-Public Use
  Company Number: US-PFIZER INC-2013005866

PATIENT
  Age: 41 Year
  Sex: Female

DRUGS (6)
  1. VENLAFAXINE HYDROCHLORIDE [Suspect]
     Dosage: UNK
     Route: 048
  2. METHYLPHENIDATE HYDROCHLORIDE [Suspect]
     Dosage: UNK
     Route: 048
  3. HYDROXYZINE PAMOATE [Suspect]
     Dosage: UNK
     Route: 048
  4. BUSPIRONE [Suspect]
     Dosage: UNK
     Route: 048
  5. TRAZODONE [Suspect]
     Dosage: UNK
     Route: 048
  6. BUPROPION [Suspect]
     Dosage: UNK
     Route: 048

REACTIONS (3)
  - Completed suicide [Fatal]
  - Cardiac arrest [Fatal]
  - Respiratory arrest [Fatal]
